FAERS Safety Report 13602731 (Version 1)
Quarter: 2017Q2

REPORT INFORMATION
  Report Type: Spontaneous
  Country: FR (occurrence: FR)
  Receive Date: 20170601
  Receipt Date: 20170601
  Transmission Date: 20170830
  Serious: Yes (Other)
  Sender: FDA-Public Use
  Company Number: FR-BAYER-2017-098769

PATIENT
  Age: 38 Year
  Sex: Female

DRUGS (1)
  1. MIRENA [Suspect]
     Active Substance: LEVONORGESTREL
     Indication: CONTRACEPTION
     Dosage: 20 MCG/24HR, CONT
     Route: 015
     Dates: start: 20120611

REACTIONS (7)
  - Insomnia [Unknown]
  - Hirsutism [Unknown]
  - Aggression [Unknown]
  - Suicidal ideation [Unknown]
  - Breast pain [Unknown]
  - Nervousness [Unknown]
  - Libido decreased [Unknown]

NARRATIVE: CASE EVENT DATE: 2013
